FAERS Safety Report 25709011 (Version 1)
Quarter: 2025Q3

REPORT INFORMATION
  Report Type: Other
  Country: EU (occurrence: EU)
  Receive Date: 20250821
  Receipt Date: 20250821
  Transmission Date: 20251021
  Serious: Yes (Other)
  Sender: MACLEODS
  Company Number: EU-SANDOZ-SDZ2025DE055200

PATIENT

DRUGS (4)
  1. VALSARTAN [Suspect]
     Active Substance: VALSARTAN
     Indication: Cardiac disorder
     Route: 065
  2. LEVOTHYROXINE [Suspect]
     Active Substance: LEVOTHYROXINE
     Indication: Cardiac disorder
     Route: 065
  3. SIMVASTATIN [Suspect]
     Active Substance: SIMVASTATIN
     Indication: Cardiac disorder
     Route: 065
  4. ASPIRIN [Suspect]
     Active Substance: ASPIRIN
     Indication: Cardiac disorder
     Route: 065

REACTIONS (3)
  - Angina pectoris [Unknown]
  - Liver function test abnormal [Unknown]
  - Arthralgia [Unknown]

NARRATIVE: CASE EVENT DATE: 20250101
